FAERS Safety Report 21931284 (Version 1)
Quarter: 2023Q1

REPORT INFORMATION
  Report Type: Spontaneous
  Country: US (occurrence: US)
  Receive Date: 20230131
  Receipt Date: 20230131
  Transmission Date: 20230418
  Serious: No
  Sender: FDA-Public Use
  Company Number: US-CIPLA LTD.-2022US06355

PATIENT

DRUGS (3)
  1. ALBUTEROL [Suspect]
     Active Substance: ALBUTEROL
     Indication: Asthma
     Dosage: 2 PUFFS ONCE EVERY 2 WEEKS FROM 8 OR 9 YEARS
     Dates: start: 2012
  2. ALBUTEROL [Suspect]
     Active Substance: ALBUTEROL
     Indication: Asthma late onset
     Dosage: UNK, QID, 1-2 PUFFS FOR EVERY 6 HOURS
     Dates: start: 2022
  3. ALBUTEROL [Suspect]
     Active Substance: ALBUTEROL
     Dosage: UNK, QID, 1-2 PUFFS FOR EVERY 6 HOURS
     Dates: start: 202209

REACTIONS (2)
  - Incorrect dose administered by device [Unknown]
  - Device ineffective [Unknown]

NARRATIVE: CASE EVENT DATE: 20220101
